FAERS Safety Report 16627454 (Version 2)
Quarter: 2019Q3

REPORT INFORMATION
  Report Type: Spontaneous
  Country: FR (occurrence: FR)
  Receive Date: 20190724
  Receipt Date: 20190819
  Transmission Date: 20191004
  Serious: Yes (Other)
  Sender: FDA-Public Use
  Company Number: FR-ASCEND THERAPEUTICS-2071270

PATIENT
  Age: 47 Year
  Sex: Female

DRUGS (6)
  1. ESTROGEL [Suspect]
     Active Substance: ESTRADIOL
     Indication: HORMONE REPLACEMENT THERAPY
     Route: 062
     Dates: start: 1990, end: 201903
  2. ANDROCUR (CYPROTERONE ACETATE) (50 MILLIGRAM, TABLET)?INDICATION FOR U [Suspect]
     Active Substance: CYPROTERONE ACETATE
     Route: 048
     Dates: start: 1990, end: 20190309
  3. ANDROCUR (CYPROTERONE ACETATE)?INDICATION FOR USE: HIRSUTISM [Suspect]
     Active Substance: CYPROTERONE ACETATE
     Route: 048
     Dates: start: 1990, end: 20190309
  4. ESTRADIOL (NOS) ESTRADIOL?INDICATION FOR USE: DRUG USE FOR UNKNOWN IND [Suspect]
     Active Substance: ESTRADIOL
     Route: 048
  5. ESTRADIOL (NOS) ?INDICATION FOR USE [Suspect]
     Active Substance: ESTRADIOL
     Route: 003
  6. ANDROCUR (CYPROTERONE ACETATE) (50 MILLIGRAM, TABLET) [Suspect]
     Active Substance: CYPROTERONE ACETATE
     Route: 048
     Dates: start: 19930315, end: 20181020

REACTIONS (1)
  - Meningioma [Not Recovered/Not Resolved]

NARRATIVE: CASE EVENT DATE: 20190130
